FAERS Safety Report 17191876 (Version 1)
Quarter: 2019Q4

REPORT INFORMATION
  Report Type: Spontaneous
  Country: US (occurrence: US)
  Receive Date: 20191223
  Receipt Date: 20191223
  Transmission Date: 20200122
  Serious: No
  Sender: FDA-Public Use
  Company Number: US-ASTRAZENECA-2019SF70962

PATIENT
  Sex: Female

DRUGS (1)
  1. BYDUREON [Suspect]
     Active Substance: EXENATIDE
     Dosage: UNKNOWN UNKNOWN
     Route: 065

REACTIONS (4)
  - Malaise [Unknown]
  - Abdominal pain upper [Unknown]
  - Haemorrhage [Unknown]
  - Diarrhoea [Unknown]
